FAERS Safety Report 6233774-8 (Version None)
Quarter: 2009Q2

REPORT INFORMATION
  Report Type: 
  Country: None (occurrence: None)
  Receive Date: 20090615
  Receipt Date: 20090615
  Transmission Date: 20091009
  Serious: Yes (Other)
  Sender: FDA-Public Use
  Company Number: None

PATIENT
  Sex: Female

DRUGS (2)
  1. BUPROPION HCL [Suspect]
     Indication: DISEASE RECURRENCE
     Dosage: 150-MG DOSE 3 P.O. Q.A.M. ORALLY
     Route: 048
     Dates: start: 20080701, end: 20080731
  2. BUPROPION HCL [Suspect]
     Indication: MAJOR DEPRESSION
     Dosage: 150-MG DOSE 3 P.O. Q.A.M. ORALLY
     Route: 048
     Dates: start: 20080701, end: 20080731

REACTIONS (9)
  - ACTIVITIES OF DAILY LIVING IMPAIRED [None]
  - APATHY [None]
  - ASTHENIA [None]
  - CONDITION AGGRAVATED [None]
  - DEPRESSION [None]
  - FATIGUE [None]
  - FEELING ABNORMAL [None]
  - GENERAL PHYSICAL HEALTH DETERIORATION [None]
  - PRODUCT SUBSTITUTION ISSUE [None]
